FAERS Safety Report 5235030-3 (Version None)
Quarter: 2007Q1

REPORT INFORMATION
  Report Type: 
  Country: None (occurrence: None)
  Receive Date: 20070207
  Receipt Date: 20070130
  Transmission Date: 20070707
  Serious: Yes (Death, Other)
  Sender: FDA-Public Use
  Company Number: 163-21880-07011510

PATIENT
  Age: 72 Year
  Sex: Male
  Weight: 72.1 kg

DRUGS (1)
  1. REVLIMID [Suspect]
     Indication: AMYLOIDOSIS
     Dosage: 10 MG, DAILY, ORAL
     Route: 048
     Dates: start: 20060323, end: 20060803

REACTIONS (2)
  - COUGH [None]
  - DYSPNOEA [None]
